FAERS Safety Report 16977203 (Version 1)
Quarter: 2019Q4

REPORT INFORMATION
  Report Type: Spontaneous
  Country: US (occurrence: US)
  Receive Date: 20191031
  Receipt Date: 20191031
  Transmission Date: 20200122
  Serious: Yes (Hospitalization, Other)
  Sender: FDA-Public Use
  Company Number: US-ABBVIE-19K-163-2976089-00

PATIENT
  Age: 59 Year
  Sex: Female
  Weight: 104.42 kg

DRUGS (2)
  1. DUOPA [Suspect]
     Active Substance: CARBIDOPA\LEVODOPA
     Indication: PARKINSON^S DISEASE
     Route: 050
     Dates: start: 201801, end: 201909
  2. DUOPA [Suspect]
     Active Substance: CARBIDOPA\LEVODOPA
     Route: 050
     Dates: start: 201909

REACTIONS (10)
  - Asthenia [Recovered/Resolved]
  - Muscular weakness [Recovering/Resolving]
  - Paraesthesia [Recovered/Resolved]
  - Drug ineffective [Recovering/Resolving]
  - Pain in extremity [Recovering/Resolving]
  - Hypoaesthesia [Recovered/Resolved]
  - Device alarm issue [Not Recovered/Not Resolved]
  - Dyskinesia [Recovering/Resolving]
  - Back pain [Recovering/Resolving]
  - Intervertebral disc protrusion [Not Recovered/Not Resolved]

NARRATIVE: CASE EVENT DATE: 2018
